FAERS Safety Report 7762921-1 (Version None)
Quarter: 2011Q3

REPORT INFORMATION
  Report Type: 
  Country: None (occurrence: None)
  Receive Date: 20110920
  Receipt Date: 20110805
  Transmission Date: 20111222
  Serious: Yes (Other)
  Sender: FDA-Public Use
  Company Number: PHHY2011US68358

PATIENT
  Sex: Female

DRUGS (10)
  1. DYAZIDE [Suspect]
  2. NORVASC [Suspect]
     Dosage: 20 MG, QD
  3. ALLOPURINOL [Suspect]
     Dosage: 300 MG, PER DAY
  4. SPIRONOLACTONE [Suspect]
     Dosage: 25 MG, PER DAY
  5. DIOVAN [Suspect]
     Dosage: 120 MG, UNK
  6. LASIX [Suspect]
  7. ALLOPURINOL [Suspect]
     Dosage: 25 MG, QD
     Dates: start: 20100326, end: 20100416
  8. TYLENOL-500 [Concomitant]
  9. DIOVAN [Suspect]
     Dosage: 80 MG ONE PER DAY
     Dates: start: 20080101
  10. ASCORBIC ACID [Concomitant]
     Dosage: 500 MG, UNK

REACTIONS (7)
  - BLOOD PRESSURE FLUCTUATION [None]
  - RASH [None]
  - OEDEMA PERIPHERAL [None]
  - GOUT [None]
  - BLOOD URIC ACID INCREASED [None]
  - PYREXIA [None]
  - OTORRHOEA [None]
